FAERS Safety Report 7878699-7 (Version None)
Quarter: 2011Q4

REPORT INFORMATION
  Report Type: 
  Country: None (occurrence: None)
  Receive Date: 20111101
  Receipt Date: 20111025
  Transmission Date: 20120403
  Serious: Yes (Other)
  Sender: FDA-Public Use
  Company Number: US-AMGEN-USASP2011055125

PATIENT
  Sex: Female

DRUGS (7)
  1. NEUPOGEN [Suspect]
     Indication: NEUTROPENIA
     Dosage: UNK
     Dates: start: 20111001
  2. KEFLEX [Concomitant]
  3. CIPRO [Concomitant]
  4. PREDNISONE [Concomitant]
  5. HERCEPTIN [Concomitant]
  6. TAXOTERE [Concomitant]
  7. CARBOPLATIN [Concomitant]

REACTIONS (5)
  - MUSCULOSKELETAL PAIN [None]
  - THERAPEUTIC RESPONSE DECREASED [None]
  - LEUKOPENIA [None]
  - BACK PAIN [None]
  - BONE PAIN [None]
